FAERS Safety Report 12965165 (Version 1)
Quarter: 2016Q4

REPORT INFORMATION
  Report Type: Spontaneous
  Country: AU (occurrence: AU)
  Receive Date: 20161122
  Receipt Date: 20161122
  Transmission Date: 20170207
  Serious: Yes (Hospitalization)
  Sender: FDA-Public Use
  Company Number: AU-NOVAST LABORATORIES, LTD-AU-2016NOV000044

PATIENT
  Age: 45 Year
  Sex: Female

DRUGS (2)
  1. NORETHINDRONE. [Suspect]
     Active Substance: NORETHINDRONE
     Indication: MENORRHAGIA
     Dosage: UNK
  2. NORETHINDRONE. [Suspect]
     Active Substance: NORETHINDRONE
     Indication: IRON DEFICIENCY ANAEMIA

REACTIONS (3)
  - Aortic thrombosis [Recovered/Resolved]
  - Pulmonary embolism [Unknown]
  - Dyspnoea [Unknown]
